FAERS Safety Report 24554309 (Version 1)
Quarter: 2024Q4

REPORT INFORMATION
  Report Type: Spontaneous
  Country: CN (occurrence: CN)
  Receive Date: 20241028
  Receipt Date: 20241028
  Transmission Date: 20250114
  Serious: Yes (Disabling)
  Sender: CHEPLAPHARM
  Company Number: CN-CHEPLA-2024013328

PATIENT
  Age: 49 Year
  Sex: Male
  Weight: 48 kg

DRUGS (1)
  1. CAPECITABINE [Suspect]
     Active Substance: CAPECITABINE
     Indication: Keratinising squamous cell carcinoma of nasopharynx
     Dosage: APPROVAL NO. GYZZ H20073024BID?DAILY DOSE: 2 GRAM
     Route: 048
     Dates: start: 20240612, end: 20241014

REACTIONS (2)
  - Tooth loss [Recovering/Resolving]
  - Hyperaesthesia teeth [Recovering/Resolving]

NARRATIVE: CASE EVENT DATE: 20241014
